FAERS Safety Report 21503014 (Version 1)
Quarter: 2022Q4

REPORT INFORMATION
  Report Type: Spontaneous
  Country: US (occurrence: None)
  Receive Date: 20221024
  Receipt Date: 20221024
  Transmission Date: 20230112
  Serious: No
  Sender: FDA-Public Use
  Company Number: None

PATIENT
  Sex: Female

DRUGS (1)
  1. PROLIA [Suspect]
     Active Substance: DENOSUMAB
     Indication: Osteoporosis
     Dosage: 60MG EVERY 6 MONTHS SUB-Q?
     Route: 058
     Dates: start: 20220423

REACTIONS (3)
  - Syringe issue [None]
  - Device malfunction [None]
  - Product dose omission issue [None]
